FAERS Safety Report 9174021 (Version 2)
Quarter: 2013Q2

REPORT INFORMATION
  Report Type: Spontaneous
  Country: US (occurrence: None)
  Receive Date: 20130313
  Receipt Date: 20130506
  Transmission Date: 20140414
  Serious: Yes (Other)
  Sender: FDA-Public Use
  Company Number: 2013P1002959

PATIENT
  Age: 50 Year
  Sex: Female

DRUGS (6)
  1. INFUMORPH [Suspect]
     Indication: PAIN
  2. INFUMORPH [Suspect]
     Indication: POST LAMINECTOMY SYNDROME
  3. INFUMORPH [Suspect]
     Indication: BACK PAIN
  4. BUPIVACAINE [Suspect]
     Indication: PAIN
  5. BUPIVACAINE [Suspect]
     Indication: POST LAMINECTOMY SYNDROME
  6. BUPIVACAINE [Suspect]
     Indication: BACK PAIN

REACTIONS (4)
  - Pain [None]
  - Device dislocation [None]
  - Cerebrospinal fluid leakage [None]
  - Catheter site discharge [None]
